FAERS Safety Report 7879837-2 (Version None)
Quarter: 2011Q4

REPORT INFORMATION
  Report Type: 
  Country: None (occurrence: None)
  Receive Date: 20111101
  Receipt Date: 20111024
  Transmission Date: 20120403
  Serious: Yes (Hospitalization, Other)
  Sender: FDA-Public Use
  Company Number: BR-ASTRAZENECA-2011SE64677

PATIENT
  Age: 78 Year
  Sex: Male
  Weight: 74 kg

DRUGS (8)
  1. LOSARTAN POTASSIUM [Suspect]
     Indication: HYPERTENSION
     Route: 048
     Dates: end: 20110101
  2. ISOSORBIDE MONONITRATE [Concomitant]
     Indication: CARDIAC DISORDER
     Route: 048
     Dates: start: 20020101
  3. VASTAREL [Concomitant]
     Indication: ARRHYTHMIA
     Route: 048
  4. OMEPRAZOLE [Suspect]
     Indication: GASTRITIS PROPHYLAXIS
     Route: 048
     Dates: start: 20060101
  5. METFORMIN HYDROCHLORIDE [Concomitant]
     Indication: DIABETES MELLITUS
     Route: 048
  6. PLAVIX [Concomitant]
     Route: 048
     Dates: start: 20050101
  7. SYMBICORT [Suspect]
     Indication: ASTHMA
     Dosage: 160./4.5 MCG AS REQUIRED
     Route: 055
     Dates: start: 20060101
  8. CARVEDILOL [Concomitant]
     Indication: CARDIAC DISORDER
     Route: 048
     Dates: start: 20020101

REACTIONS (6)
  - DIABETES MELLITUS [None]
  - LIMB INJURY [None]
  - BLOOD CHOLESTEROL INCREASED [None]
  - BLOOD PRESSURE INCREASED [None]
  - IMPAIRED HEALING [None]
  - CEREBRAL ISCHAEMIA [None]
